FAERS Safety Report 8242942-5 (Version None)
Quarter: 2012Q1

REPORT INFORMATION
  Report Type: 
  Country: None (occurrence: None)
  Receive Date: 20120329
  Receipt Date: 20120329
  Transmission Date: 20120608
  Serious: Yes (Life-Threatening, Hospitalization)
  Sender: FDA-Public Use
  Company Number: None

PATIENT
  Age: 66 Year
  Sex: Male

DRUGS (1)
  1. ANDROGEL [Suspect]
     Indication: BENIGN PROSTATIC HYPERPLASIA
     Route: 061
     Dates: start: 20050101, end: 20081201

REACTIONS (4)
  - FIBRIN D DIMER INCREASED [None]
  - DEEP VEIN THROMBOSIS [None]
  - THYROID CANCER [None]
  - PULMONARY EMBOLISM [None]
